FAERS Safety Report 4684331-6 (Version None)
Quarter: 2005Q2

REPORT INFORMATION
  Report Type: 
  Country: None (occurrence: None)
  Receive Date: 20050531
  Receipt Date: 20040602
  Transmission Date: 20051028
  Serious: Yes (Other)
  Sender: FDA-Public Use
  Company Number: 200413815US

PATIENT
  Sex: Female
  Weight: 101.3 kg

DRUGS (14)
  1. LOVENOX [Suspect]
     Indication: DEEP VEIN THROMBOSIS
     Dosage: 1 MG/KG BID
     Dates: start: 20040502, end: 20040517
  2. SALBUTAMOL, IPRATROPIUM BROMIDE (SALBUTAMOL W/IPRATROPIUM BROMIDE) [Concomitant]
  3. ACETAMINOPHEN [Concomitant]
  4. FAMOTIDINE [Concomitant]
  5. FENTANYL [Concomitant]
  6. FLUOXETINE [Concomitant]
  7. LORAZEPAM [Concomitant]
  8. METRONIDAZOLE [Concomitant]
  9. MIDAZOLAM [Concomitant]
  10. TRIPLE ANTIBIOTIC CREAM [Concomitant]
  11. PIPERACILLIN SODIUM, TAZOBACTAM SODIUM (ZOSYN) [Concomitant]
  12. PROPOFOL [Concomitant]
  13. BACTRIM [Concomitant]
  14. VANCOMYCIN [Concomitant]

REACTIONS (1)
  - HAEMORRHAGE [None]
